FAERS Safety Report 15811863 (Version 3)
Quarter: 2020Q2

REPORT INFORMATION
  Report Type: Spontaneous
  Country: GB (occurrence: GB)
  Receive Date: 20190111
  Receipt Date: 20200507
  Transmission Date: 20200713
  Serious: Yes (Death, Life-Threatening, Hospitalization)
  Sender: FDA-Public Use
  Company Number: PHHY2019GB004591

PATIENT
  Age: 66 Year
  Sex: Male

DRUGS (8)
  1. COLCHICINE. [Interacting]
     Active Substance: COLCHICINE
     Indication: GOUT
     Dosage: 1.2 MG, PER DAY
     Route: 065
  2. INSULIN [Concomitant]
     Active Substance: INSULIN NOS
     Indication: DIABETES MELLITUS
     Dosage: UNK
     Route: 065
  3. CYCLOSPORINE. [Suspect]
     Active Substance: CYCLOSPORINE
     Indication: POSTOPERATIVE CARE
     Dosage: 150 MG, PER DAY
     Route: 065
  4. ZOCOR [Interacting]
     Active Substance: SIMVASTATIN
     Indication: HYPERLIPIDAEMIA
     Dosage: 30 MG, QD
     Route: 048
  5. METICORTEN [Interacting]
     Active Substance: PREDNISONE
     Indication: POSTOPERATIVE CARE
     Dosage: 7.5 MILLIGRAM, PER DAY
     Route: 048
  6. ZOCOR [Interacting]
     Active Substance: SIMVASTATIN
     Indication: MYOCARDIAL ISCHAEMIA
     Dosage: 60 MG, QD
     Route: 048
  7. MYCOPHENOLATE SODIUM [Suspect]
     Active Substance: MYCOPHENOLATE SODIUM
     Indication: POSTOPERATIVE CARE
  8. MYCOPHENOLATE SODIUM [Suspect]
     Active Substance: MYCOPHENOLATE SODIUM
     Indication: GOUT
     Dosage: 500 MG, PER DAY
     Route: 065

REACTIONS (4)
  - Myopathy toxic [Fatal]
  - Pneumonia [Fatal]
  - Rhabdomyolysis [Fatal]
  - Drug interaction [Fatal]
